FAERS Safety Report 9981200 (Version 1)
Quarter: 2014Q1

REPORT INFORMATION
  Report Type: Spontaneous
  Country: US (occurrence: None)
  Receive Date: 20140306
  Receipt Date: 20140306
  Transmission Date: 20141002
  Serious: No
  Sender: FDA-Public Use
  Company Number: None

PATIENT
  Age: 49 Year
  Sex: Female
  Weight: 90.27 kg

DRUGS (1)
  1. CIPROFLOXACIN 250MG [Suspect]
     Indication: URINARY TRACT INFECTION
     Dosage: CIPROFLOXACIN HCL TWICE DAILY TAKEN BY MOUTH
     Route: 048
     Dates: start: 20140303, end: 20140305

REACTIONS (1)
  - Paraesthesia [None]
